FAERS Safety Report 5961040-4 (Version None)
Quarter: 2008Q4

REPORT INFORMATION
  Report Type: 
  Country: None (occurrence: None)
  Receive Date: 20081121
  Receipt Date: 20080923
  Transmission Date: 20090506
  Serious: No
  Sender: FDA-Public Use
  Company Number: A0748711A

PATIENT
  Age: 78 Year
  Sex: Male

DRUGS (11)
  1. LANOXIN [Suspect]
     Indication: ATRIAL FIBRILLATION
     Dosage: .2MG TWICE PER DAY
     Route: 048
  2. LOTREL [Concomitant]
  3. MAGNESIUM SULFATE [Concomitant]
  4. ZETIA [Concomitant]
  5. SIMVASTATIN [Concomitant]
  6. POTASSIUM CHLORIDE [Concomitant]
  7. FINASTERIDE [Concomitant]
  8. FLOMAX [Concomitant]
  9. CALCIUM WITH VITAMIN D [Concomitant]
  10. SOTALOL HCL [Concomitant]
  11. COUMADIN [Concomitant]

REACTIONS (1)
  - DRUG INEFFECTIVE [None]
